FAERS Safety Report 13710960 (Version 1)
Quarter: 2017Q3

REPORT INFORMATION
  Report Type: Spontaneous
  Country: CN (occurrence: CN)
  Receive Date: 20170703
  Receipt Date: 20170703
  Transmission Date: 20171127
  Serious: Yes (Death, Life-Threatening, Hospitalization)
  Sender: FDA-Public Use
  Company Number: CN-STRIDES ARCOLAB LIMITED-2017SP010131

PATIENT

DRUGS (3)
  1. PREDNISOLONE. [Suspect]
     Active Substance: PREDNISOLONE
     Indication: RENAL TRANSPLANT
     Dosage: UNK
     Route: 065
  2. TACROLIMUS. [Suspect]
     Active Substance: TACROLIMUS
     Indication: RENAL TRANSPLANT
     Dosage: UNK
     Route: 065
  3. MYCOPHENOLATE MOFETIL. [Suspect]
     Active Substance: MYCOPHENOLATE MOFETIL
     Indication: RENAL TRANSPLANT
     Dosage: UNK
     Route: 065

REACTIONS (23)
  - Shock haemorrhagic [Unknown]
  - Renal necrosis [Unknown]
  - Chills [Unknown]
  - Escherichia infection [Unknown]
  - Renal artery stenosis [Unknown]
  - Ecchymosis [Unknown]
  - Enterococcal infection [Unknown]
  - Cardiac failure [Fatal]
  - Arrhythmia [Unknown]
  - Haematoma [Unknown]
  - Vasculitis [Unknown]
  - Pyrexia [Recovered/Resolved]
  - Renal artery thrombosis [Unknown]
  - Mucormycosis [Unknown]
  - Arterial rupture [Unknown]
  - Hypovolaemic shock [Unknown]
  - Pain [Unknown]
  - Peripheral artery stenosis [Recovered/Resolved]
  - Diarrhoea [Recovered/Resolved]
  - Hypothermia [Unknown]
  - Coagulopathy [Unknown]
  - Peripheral swelling [Unknown]
  - Abdominal pain [Unknown]

NARRATIVE: CASE EVENT DATE: 20131203
